FAERS Safety Report 10114494 (Version 2)
Quarter: 2014Q2

REPORT INFORMATION
  Report Type: Report from Study
  Country: US (occurrence: US)
  Receive Date: 20140426
  Receipt Date: 20140506
  Transmission Date: 20141212
  Serious: No
  Sender: FDA-Public Use
  Company Number: US-ROCHE-1384708

PATIENT
  Age: 46 Year
  Sex: Female
  Weight: 89.4 kg

DRUGS (7)
  1. TOCILIZUMAB [Suspect]
     Indication: RHEUMATOID ARTHRITIS
     Dosage: LAST DOSE PRIOR TO SAE 04/APR/2014
     Route: 058
     Dates: start: 20140314, end: 20140414
  2. METHOTREXATE [Concomitant]
     Route: 065
     Dates: start: 20120214
  3. TIZANIDINE [Concomitant]
     Route: 065
     Dates: start: 20120427
  4. IBUPROFEN [Concomitant]
     Route: 065
     Dates: start: 201306
  5. FOLIC ACID [Concomitant]
     Route: 065
     Dates: start: 20120214
  6. TEMAZEPAM [Concomitant]
     Route: 065
     Dates: start: 20130722
  7. VITAMIN D3 [Concomitant]
     Route: 065
     Dates: start: 2012

REACTIONS (1)
  - Petechiae [Recovered/Resolved]
